FAERS Safety Report 22289742 (Version 1)
Quarter: 2023Q2

REPORT INFORMATION
  Report Type: Spontaneous
  Country: US (occurrence: None)
  Receive Date: 20230504
  Receipt Date: 20230504
  Transmission Date: 20230721
  Serious: No
  Sender: FDA-Public Use
  Company Number: None

PATIENT
  Age: 44 Year
  Sex: Female
  Weight: 72.9 kg

DRUGS (1)
  1. VYEPTI [Suspect]
     Active Substance: EPTINEZUMAB-JJMR
     Dates: start: 20230424

REACTIONS (5)
  - Throat irritation [None]
  - Sinus disorder [None]
  - Fatigue [None]
  - Nausea [None]
  - Gastrointestinal disorder [None]

NARRATIVE: CASE EVENT DATE: 20230502
